FAERS Safety Report 7347074-6 (Version None)
Quarter: 2011Q1

REPORT INFORMATION
  Report Type: 
  Country: None (occurrence: None)
  Receive Date: 20110311
  Receipt Date: 20110228
  Transmission Date: 20110831
  Serious: Yes (Other)
  Sender: FDA-Public Use
  Company Number: US-ELI_LILLY_AND_COMPANY-US201103000902

PATIENT
  Age: 65 Year
  Sex: Male

DRUGS (4)
  1. EFFIENT [Suspect]
     Indication: PERCUTANEOUS CORONARY INTERVENTION
     Dosage: 60 MG, LOADING DOSE
  2. EFFIENT [Suspect]
     Dosage: 10 MG, DAILY (1/D)
  3. ASPIRIN [Concomitant]
  4. REOPRO [Concomitant]

REACTIONS (2)
  - NO THERAPEUTIC RESPONSE [None]
  - THROMBOSIS IN DEVICE [None]
